FAERS Safety Report 5035844-9 (Version None)
Quarter: 2006Q2

REPORT INFORMATION
  Report Type: 
  Country: None (occurrence: None)
  Receive Date: 20060526
  Receipt Date: 20060208
  Transmission Date: 20061013
  Serious: No
  Sender: FDA-Public Use
  Company Number: 221944

PATIENT
  Age: 56 Year
  Sex: Female

DRUGS (12)
  1. RAPTIVA [Suspect]
     Indication: PSORIASIS
     Dosage: 1/WEEK, SUBCUTANEOUS
     Route: 058
     Dates: start: 20051011
  2. TAMOXIFEN CITRATE [Concomitant]
  3. SYNTHROID [Concomitant]
  4. ACYCLOVIR [Concomitant]
  5. WELLBUTRIN XL [Concomitant]
  6. PROTONIX [Concomitant]
  7. NORVASC [Concomitant]
  8. ZOCOR [Concomitant]
  9. ENABLEX (DARIFENACIN) [Concomitant]
  10. ASPIRIN [Concomitant]
  11. FOLIC ACID [Concomitant]
  12. VITAMINS (VITAMINS NOS) [Concomitant]

REACTIONS (1)
  - LYMPHADENOPATHY [None]
